FAERS Safety Report 13577862 (Version 1)
Quarter: 2017Q2

REPORT INFORMATION
  Report Type: Spontaneous
  Country: US (occurrence: US)
  Receive Date: 20170524
  Receipt Date: 20170524
  Transmission Date: 20170830
  Serious: No
  Sender: FDA-Public Use
  Company Number: US-MYLANLABS-2017M1018302

PATIENT
  Age: 38 Year
  Sex: Female
  Weight: 77.98 kg

DRUGS (1)
  1. ECONTRA EZ [Suspect]
     Active Substance: LEVONORGESTREL
     Indication: CONTRACEPTION
     Dosage: 1.5 MG, ONCE
     Route: 048
     Dates: start: 20170313, end: 20170313

REACTIONS (2)
  - Metrorrhagia [Recovered/Resolved]
  - Menstruation delayed [Not Recovered/Not Resolved]

NARRATIVE: CASE EVENT DATE: 20170313
